FAERS Safety Report 21870758 (Version 1)
Quarter: 2023Q1

REPORT INFORMATION
  Report Type: Report from Study
  Country: US (occurrence: US)
  Receive Date: 20230117
  Receipt Date: 20230117
  Transmission Date: 20230417
  Serious: No
  Sender: FDA-Public Use
  Company Number: US-ABBVIE-4238877

PATIENT
  Sex: Female

DRUGS (2)
  1. SKYRIZI [Suspect]
     Active Substance: RISANKIZUMAB-RZAA
     Indication: Psoriasis
     Dosage: FORM STRENGTH: 150 MILLIGRAM?WEEK 4, AND EVERY 12 WEEKS THEREAFTER.
     Route: 058
     Dates: start: 202211
  2. SKYRIZI [Suspect]
     Active Substance: RISANKIZUMAB-RZAA
     Dosage: WEEK 0?FORM STRENGTH: 150 MILLIGRAM
     Route: 058
     Dates: start: 20221027, end: 20221027

REACTIONS (4)
  - Condition aggravated [Not Recovered/Not Resolved]
  - Gastroenteritis viral [Recovering/Resolving]
  - Pain [Unknown]
  - Mobility decreased [Unknown]
